FAERS Safety Report 22380867 (Version 1)
Quarter: 2023Q2

REPORT INFORMATION
  Report Type: Spontaneous
  Country: DE (occurrence: DE)
  Receive Date: 20230530
  Receipt Date: 20230530
  Transmission Date: 20230722
  Serious: Yes (Hospitalization, Other)
  Sender: FDA-Public Use
  Company Number: DE-ASTELLAS-2023EU000143

PATIENT
  Sex: Male

DRUGS (10)
  1. BENDAMUSTINE [Suspect]
     Active Substance: BENDAMUSTINE
     Indication: Product used for unknown indication
     Dosage: 90 MG/KG, CYCLIC (D1+2), POWDER (EXCEPT DUSTING POWDER)
     Route: 042
     Dates: start: 20210517
  2. BENDAMUSTINE [Suspect]
     Active Substance: BENDAMUSTINE
     Dosage: 90 MG/M2, CYCLIC (4 CYCLES, D1+2), POWDER (EXCEPT DUSTING POWDER)
     Route: 042
     Dates: start: 20210621, end: 202111
  3. CYCLOPHOSPHAMIDE [Suspect]
     Active Substance: CYCLOPHOSPHAMIDE
     Indication: Plasma cell myeloma
     Dosage: 50 MG, CYCLIC (D1-21)
     Dates: start: 20220105
  4. BORTEZOMIB [Suspect]
     Active Substance: BORTEZOMIB
     Indication: Plasma cell myeloma
     Dosage: 1.3 MG/M2, CYCLIC (4 CYCLES, D1,4,8,11 Z1-8;)
     Route: 058
     Dates: start: 20210628, end: 202111
  5. DEXAMETHASONE [Suspect]
     Active Substance: DEXAMETHASONE
     Indication: Plasma cell myeloma
     Dosage: 20 MG, CYCLIC (4 CYCLES, D1,2,4,5, 8,9,15,16)
     Dates: start: 20210628, end: 202111
  6. DEXAMETHASONE [Suspect]
     Active Substance: DEXAMETHASONE
     Dosage: 20 MG, CYCLIC. (D1,8,15,22)
     Dates: start: 202208
  7. DEXAMETHASONE [Suspect]
     Active Substance: DEXAMETHASONE
     Dosage: 20 MG, CYCLIC (D1,8,15,22)
     Dates: start: 20220105
  8. DEXAMETHASONE [Suspect]
     Active Substance: DEXAMETHASONE
     Dosage: 20 MG, CYCLIC (D1,8,15,22)
     Dates: start: 20220719
  9. DEXAMETHASONE [Suspect]
     Active Substance: DEXAMETHASONE
     Dosage: 20 MG, CYCLIC (D1,8,15,22)
     Dates: start: 202209
  10. POMALIDOMIDE [Suspect]
     Active Substance: POMALIDOMIDE
     Indication: Plasma cell myeloma
     Dosage: 4 MG, CYCLIC (D1-21)
     Dates: start: 20220105

REACTIONS (7)
  - Febrile neutropenia [Unknown]
  - Malignant neoplasm progression [Unknown]
  - Rhinovirus infection [Unknown]
  - Pneumonia [Unknown]
  - Neutropenia [Unknown]
  - Off label use [Unknown]
  - Product use issue [Unknown]

NARRATIVE: CASE EVENT DATE: 20210628
